FAERS Safety Report 4761955-9 (Version None)
Quarter: 2005Q3

REPORT INFORMATION
  Report Type: 
  Country: None (occurrence: None)
  Receive Date: 20050831
  Receipt Date: 20050525
  Transmission Date: 20060218
  Serious: No
  Sender: FDA-Public Use
  Company Number: PHEH2005US05946

PATIENT
  Age: 73 Year
  Sex: Female

DRUGS (4)
  1. ENABLEX [Suspect]
     Indication: HYPERTONIC BLADDER
     Dosage: QD, ORAL
     Route: 048
     Dates: start: 20050504, end: 20050515
  2. EVISTA [Concomitant]
  3. TAPAZOLE [Concomitant]
  4. VITAMINS (NO INGREDIENTS/SUBSTANCES) [Concomitant]

REACTIONS (5)
  - ABDOMINAL PAIN [None]
  - ABDOMINAL TENDERNESS [None]
  - CONSTIPATION [None]
  - DIARRHOEA [None]
  - MEMORY IMPAIRMENT [None]
